FAERS Safety Report 20213822 (Version 1)
Quarter: 2021Q4

REPORT INFORMATION
  Report Type: Spontaneous
  Country: US (occurrence: None)
  Receive Date: 20211221
  Receipt Date: 20211221
  Transmission Date: 20220303
  Serious: Yes (Other)
  Sender: FDA-Public Use
  Company Number: None

PATIENT
  Age: 59 Year
  Sex: Female

DRUGS (7)
  1. BUPROPION [Suspect]
     Active Substance: BUPROPION
     Indication: Depression
     Dosage: FREQUENCY : TWICE A DAY;?
     Route: 048
     Dates: start: 20210802, end: 20210808
  2. ARMOUR THYROID [Concomitant]
     Active Substance: THYROID, PORCINE
  3. SPIRONOLACTONE [Concomitant]
     Active Substance: SPIRONOLACTONE
  4. LISINOPRIL [Concomitant]
     Active Substance: LISINOPRIL
  5. RELPAX [Concomitant]
     Active Substance: ELETRIPTAN HYDROBROMIDE
  6. BUPROPION [Concomitant]
     Active Substance: BUPROPION
  7. ZOLPIDEM [Concomitant]
     Active Substance: ZOLPIDEM TARTRATE

REACTIONS (5)
  - Dyspepsia [None]
  - Disturbance in attention [None]
  - Drug ineffective [None]
  - Allergic reaction to excipient [None]
  - Product substitution issue [None]

NARRATIVE: CASE EVENT DATE: 20210802
